FAERS Safety Report 24063370 (Version 1)
Quarter: 2024Q3

REPORT INFORMATION
  Report Type: Other
  Country: FR (occurrence: FR)
  Receive Date: 20240709
  Receipt Date: 20240709
  Transmission Date: 20241017
  Serious: Yes (Other)
  Sender: SIEMENS
  Company Number: FR-ROCHE-2963761

PATIENT
  Age: 55 Year
  Sex: Female
  Weight: 64.6 kg

DRUGS (50)
  1. FLUDEOXYGLUCOSE F-18 [Suspect]
     Active Substance: FLUDEOXYGLUCOSE F-18
     Indication: B-cell lymphoma
     Dosage: ON 06/OCT/2020, SHE RECEIVED MOST RECENT DOSE OF FDG PET TRACER PRIOR TO ONSET OF AE AND SAE.
     Route: 042
     Dates: start: 20201006
  2. GLOFITAMAB [Suspect]
     Active Substance: GLOFITAMAB
     Indication: B-cell lymphoma
     Dosage: 2.5 MG
     Route: 042
     Dates: start: 20201119
  3. GLOFITAMAB [Suspect]
     Active Substance: GLOFITAMAB
     Dosage: AT 1:50 PM TO 9:00 PM, SHE RECEIVED MOST RECENT DOSE
     Route: 042
     Dates: start: 20201230
  4. VALACYCLOVIR HYDROCHLORIDE [Concomitant]
     Active Substance: VALACYCLOVIR HYDROCHLORIDE
     Indication: Product used for unknown indication
     Dosage: 500 MG PER HALF DAY
     Route: 048
  5. ALIZAPRIDE HYDROCHLORIDE [Concomitant]
     Active Substance: ALIZAPRIDE HYDROCHLORIDE
     Dosage: 2 ML AS NECESSARY
     Route: 042
     Dates: start: 20201124, end: 20210103
  6. Primeperan [Concomitant]
     Indication: Product used for unknown indication
     Dosage: 1 PACKET
     Route: 048
     Dates: start: 20210316
  7. OMEPRAZOLE [Concomitant]
     Active Substance: OMEPRAZOLE
     Dosage: 40 MG PER DAY
     Route: 048
     Dates: start: 20210316
  8. TOCILIZUMAB [Concomitant]
     Active Substance: TOCILIZUMAB
     Indication: B-cell lymphoma
     Dosage: 550 MG PER TOTAL
     Route: 042
     Dates: start: 20201120
  9. TOCILIZUMAB [Concomitant]
     Active Substance: TOCILIZUMAB
     Dosage: MOST RECENT DOSE
     Route: 042
     Dates: start: 20201128
  10. OXYGEN [Concomitant]
     Active Substance: OXYGEN
     Dosage: 1.5 L AS NECESSARY
     Dates: start: 20201120
  11. ALPRAZOLAM [Concomitant]
     Active Substance: ALPRAZOLAM
     Indication: Product used for unknown indication
     Dosage: 0.75 MG PER DAY
     Route: 048
     Dates: start: 20210202
  12. OXYCODONE HYDROCHLORIDE [Concomitant]
     Active Substance: OXYCODONE HYDROCHLORIDE
     Indication: Product used for unknown indication
     Dosage: 5 MG AS INTERMITTENT
     Route: 048
     Dates: start: 20201110, end: 20210712
  13. FUROSEMIDE [Concomitant]
     Active Substance: FUROSEMIDE
     Indication: Product used for unknown indication
     Dosage: INTERMITTENT
     Route: 065
     Dates: start: 20201123, end: 20201206
  14. INNOHEP [Concomitant]
     Active Substance: TINZAPARIN SODIUM
     Dosage: 14000 IU PER DAY
     Route: 058
     Dates: start: 20201123
  15. INNOHEP [Concomitant]
     Active Substance: TINZAPARIN SODIUM
     Dosage: 1400 IU PER DAY
     Route: 058
     Dates: start: 20200202, end: 20210806
  16. RASBURICASE [Concomitant]
     Active Substance: RASBURICASE
     Indication: Product used for unknown indication
     Dosage: 1.5 OTHER
     Route: 042
     Dates: start: 20201223, end: 20201230
  17. POTASSIUM CHLORIDE [Concomitant]
     Active Substance: POTASSIUM CHLORIDE
     Indication: Hypokalaemia
     Dosage: 3000 MG PER DAY
     Route: 048
     Dates: start: 20210202, end: 20210316
  18. OBINUTUZUMAB [Concomitant]
     Active Substance: OBINUTUZUMAB
     Indication: B-cell lymphoma
     Dosage: 1000 MG PER TOTAL
     Route: 042
     Dates: start: 20201112
  19. OBINUTUZUMAB [Concomitant]
     Active Substance: OBINUTUZUMAB
     Dosage: AT 12:00 PM TO 4:30 PM, SHE RECEIVED MOST RECENT DOSE
     Route: 042
     Dates: start: 20201218
  20. SMECTA [Concomitant]
     Active Substance: MONTMORILLONITE
     Dosage: PRN
     Route: 048
     Dates: start: 20201202, end: 20210121
  21. VANCOMYCIN [Concomitant]
     Active Substance: VANCOMYCIN
     Indication: Cytokine release syndrome
     Dosage: UNK
     Route: 065
     Dates: start: 20201129
  22. ONDANSETRON [Concomitant]
     Active Substance: ONDANSETRON
     Dosage: 8 MG AS NECESSARY
     Route: 048
     Dates: start: 20201124, end: 20210427
  23. LYRICA [Concomitant]
     Active Substance: PREGABALIN
     Indication: Product used for unknown indication
     Dosage: UNK
     Route: 048
     Dates: end: 20210607
  24. AMITRIPTYLINE HYDROCHLORIDE [Concomitant]
     Active Substance: AMITRIPTYLINE HYDROCHLORIDE
     Indication: Back pain
     Dosage: 15 DROPS PER DAY
     Route: 048
     Dates: start: 20201125
  25. ERYTHROPOIETIN [Concomitant]
     Active Substance: ERYTHROPOIETIN
     Indication: Anaemia
     Dosage: 20000 IU PER WEEK
     Route: 058
     Dates: start: 20201216, end: 20210316
  26. ERYTHROPOIETIN [Concomitant]
     Active Substance: ERYTHROPOIETIN
     Dosage: 20000 IU PER WEEK
     Route: 058
     Dates: start: 20210202, end: 20210315
  27. ERYTHROPOIETIN [Concomitant]
     Active Substance: ERYTHROPOIETIN
     Dosage: 30000 IU PER WEEK
     Route: 058
     Dates: start: 20210316
  28. URSODIOL [Concomitant]
     Active Substance: URSODIOL
     Indication: Product used for unknown indication
     Dosage: 500 MG PER HALF DAY
     Route: 048
     Dates: start: 20200224, end: 20210806
  29. RACECADOTRIL [Concomitant]
     Active Substance: RACECADOTRIL
     Dosage: FREQUENCY TEXT:PRN
     Route: 048
     Dates: start: 20201202, end: 20210121
  30. MIDAZOLAM [Concomitant]
     Active Substance: MIDAZOLAM
     Indication: Anxiety
     Dosage: 1 MG PER DAY
     Route: 048
     Dates: start: 20210106, end: 20210113
  31. ACETAMINOPHEN [Concomitant]
     Active Substance: ACETAMINOPHEN
     Route: 042
     Dates: start: 20201218, end: 20201218
  32. ACETAMINOPHEN [Concomitant]
     Active Substance: ACETAMINOPHEN
     Route: 042
     Dates: start: 20210113, end: 20210702
  33. ACETAMINOPHEN [Concomitant]
     Active Substance: ACETAMINOPHEN
     Route: 042
     Dates: start: 20201223, end: 20201230
  34. ACETAMINOPHEN [Concomitant]
     Active Substance: ACETAMINOPHEN
     Dosage: FREQUENCY TEXT:INTERMITTENT
     Route: 042
     Dates: start: 20201121
  35. HEXETIDINE [Concomitant]
     Active Substance: HEXETIDINE
     Indication: Product used for unknown indication
     Dosage: AS NECESSARY
     Route: 002
     Dates: start: 20201118, end: 20210520
  36. SODIUM BICARBONATE [Concomitant]
     Active Substance: SODIUM BICARBONATE
     Indication: Mucosal inflammation
     Dosage: AS NECESSARY
     Route: 048
     Dates: start: 20201118, end: 20210520
  37. POLARAMINE [Concomitant]
     Active Substance: DEXCHLORPHENIRAMINE MALEATE
     Indication: Product used for unknown indication
     Route: 042
     Dates: start: 20210113, end: 20210702
  38. POLARAMINE [Concomitant]
     Active Substance: DEXCHLORPHENIRAMINE MALEATE
     Route: 042
     Dates: start: 20201218, end: 20201218
  39. POLARAMINE [Concomitant]
     Active Substance: DEXCHLORPHENIRAMINE MALEATE
     Route: 042
     Dates: start: 20201223, end: 20201230
  40. Transipeg [Concomitant]
     Indication: Constipation
     Dosage: 1 PACKET AS NECESSARY (PRN)
     Route: 048
     Dates: start: 20210316
  41. HALDOL [Concomitant]
     Active Substance: HALOPERIDOL
     Indication: Anxiety
     Dosage: 10 MG PER DAY
     Route: 048
     Dates: start: 20210107
  42. METHYLPREDNISOLONE [Concomitant]
     Active Substance: METHYLPREDNISOLONE
     Indication: Product used for unknown indication
     Dosage: 80 MG PER WEEK
     Route: 042
     Dates: start: 20201223, end: 20201230
  43. METHYLPREDNISOLONE [Concomitant]
     Active Substance: METHYLPREDNISOLONE
     Dosage: 80 MG PER TOTAL
     Route: 042
     Dates: start: 20201218, end: 20201218
  44. MEROPENEM [Concomitant]
     Active Substance: MEROPENEM
     Indication: Cytokine release syndrome
     Dosage: 1000 MG PER DAY
     Route: 048
     Dates: start: 20201129, end: 20201215
  45. MEROPENEM [Concomitant]
     Active Substance: MEROPENEM
     Dosage: 2000 MG PER 0.33 DAY
     Route: 042
     Dates: start: 20201129, end: 20201216
  46. LEUCOVORIN CALCIUM [Concomitant]
     Active Substance: LEUCOVORIN CALCIUM
     Indication: Product used for unknown indication
     Dosage: 25 MG PER WEEK
     Route: 048
     Dates: end: 20210520
  47. CHLORPROMAZINE [Concomitant]
     Active Substance: CHLORPROMAZINE
     Indication: Anxiety
     Dosage: UNK
     Route: 065
     Dates: start: 20210103, end: 20210105
  48. VALACYCLOVIR HYDROCHLORIDE [Concomitant]
     Active Substance: VALACYCLOVIR HYDROCHLORIDE
     Indication: Product used for unknown indication
     Dosage: 500 MG PER 0.5 DAY
     Route: 048
     Dates: start: 20201118
  49. BACTRIM [Concomitant]
     Active Substance: SULFAMETHOXAZOLE\TRIMETHOPRIM
     Indication: Product used for unknown indication
     Dosage: UNK
     Route: 048
  50. Alginate [Concomitant]
     Dosage: 3 PACKET PER DAY
     Route: 048
     Dates: start: 20210202

REACTIONS (1)
  - Hepatic cytolysis [Recovered/Resolved]

NARRATIVE: CASE EVENT DATE: 20201231
